FAERS Safety Report 5615385-8 (Version None)
Quarter: 2008Q1

REPORT INFORMATION
  Report Type: 
  Country: None (occurrence: None)
  Receive Date: 20080131
  Receipt Date: 20080116
  Transmission Date: 20080703
  Serious: Yes (Disabling)
  Sender: FDA-Public Use
  Company Number: 2007JP005409

PATIENT
  Age: 57 Year
  Sex: Female

DRUGS (1)
  1. PROGRAF [Suspect]
     Indication: RHEUMATOID ARTHRITIS
     Dosage: 1.5 MG UNKNOWN/D, ORAL
     Route: 048
     Dates: start: 20071105

REACTIONS (5)
  - CONDITION AGGRAVATED [None]
  - HYPOAESTHESIA [None]
  - MONONEUROPATHY MULTIPLEX [None]
  - NEUROPATHY PERIPHERAL [None]
  - RHEUMATOID ARTHRITIS [None]
